FAERS Safety Report 4880105-1 (Version None)
Quarter: 2006Q1

REPORT INFORMATION
  Report Type: 
  Country: None (occurrence: None)
  Receive Date: 20060113
  Receipt Date: 20060104
  Transmission Date: 20060701
  Serious: Yes (Hospitalization)
  Sender: FDA-Public Use
  Company Number: FR-BRISTOL-MYERS SQUIBB COMPANY-13244223

PATIENT
  Age: 72 Year
  Sex: Male
  Weight: 74 kg

DRUGS (9)
  1. ENDOXAN [Suspect]
     Indication: BURKITT'S LYMPHOMA
     Route: 042
     Dates: start: 20051207, end: 20051209
  2. ARACYTINE [Suspect]
     Indication: BURKITT'S LYMPHOMA
     Dates: start: 20051207, end: 20051207
  3. DOXORUBICIN HCL [Suspect]
     Indication: BURKITT'S LYMPHOMA
     Route: 042
     Dates: start: 20051207, end: 20051207
  4. VINCRISTINE [Suspect]
     Indication: BURKITT'S LYMPHOMA
     Route: 042
     Dates: start: 20051206, end: 20051206
  5. METHOTREXATE [Suspect]
     Indication: BURKITT'S LYMPHOMA
     Route: 042
     Dates: start: 20051206, end: 20051206
  6. METHOTREXATE [Suspect]
     Route: 065
     Dates: start: 20051207, end: 20051207
  7. FOLINIC ACID [Concomitant]
     Dates: start: 20051207, end: 20051211
  8. HYDROCORTISONE [Concomitant]
     Dates: start: 20051207
  9. SOLU-MEDROL [Concomitant]
     Dates: start: 20051128

REACTIONS (5)
  - LUNG INFECTION [None]
  - PANCYTOPENIA [None]
  - PYREXIA [None]
  - RENAL FAILURE ACUTE [None]
  - RESPIRATORY DISTRESS [None]
